FAERS Safety Report 8435914-9 (Version None)
Quarter: 2012Q2

REPORT INFORMATION
  Report Type: 
  Country: None (occurrence: None)
  Receive Date: 20120614
  Receipt Date: 20120605
  Transmission Date: 20120825
  Serious: Yes (Other)
  Sender: FDA-Public Use
  Company Number: CA-JNJFOC-20120603006

PATIENT
  Sex: Male

DRUGS (2)
  1. REMICADE [Suspect]
     Indication: COLITIS ULCERATIVE
     Route: 042
     Dates: start: 20120401
  2. REMICADE [Suspect]
     Route: 042
     Dates: start: 20100105

REACTIONS (3)
  - PROSTATITIS [None]
  - NECK PAIN [None]
  - LYMPHADENOPATHY [None]
